FAERS Safety Report 7565921-X (Version None)
Quarter: 2011Q2

REPORT INFORMATION
  Report Type: 
  Country: None (occurrence: None)
  Receive Date: 20110623
  Receipt Date: 20110609
  Transmission Date: 20111010
  Serious: Yes (Disabling)
  Sender: FDA-Public Use
  Company Number: GB-MYLANLABS-2011S1011994

PATIENT
  Age: 59 Year
  Sex: Male

DRUGS (4)
  1. DULOXETIME HYDROCHLORIDE [Concomitant]
     Indication: ANXIETY
     Route: 048
  2. RASAGILINE [Suspect]
     Indication: PARKINSON'S DISEASE
  3. REQUIP [Concomitant]
     Indication: PARKINSON'S DISEASE
     Route: 048
  4. BUSPIRONE HCL [Suspect]
     Indication: ANXIETY
     Route: 048
     Dates: start: 20110101, end: 20110101

REACTIONS (4)
  - HYPERHIDROSIS [None]
  - VISION BLURRED [None]
  - DYSPHORIA [None]
  - AGITATION [None]
